FAERS Safety Report 16663574 (Version 1)
Quarter: 2019Q3

REPORT INFORMATION
  Report Type: Report from Study
  Country: US (occurrence: US)
  Receive Date: 20190802
  Receipt Date: 20190802
  Transmission Date: 20191004
  Serious: No
  Sender: FDA-Public Use
  Company Number: US-EXELIXIS-CABO-19021525

PATIENT
  Sex: Male

DRUGS (22)
  1. COMETRIQ [Suspect]
     Active Substance: CABOZANTINIB S-MALATE
     Indication: RENAL CANCER
     Dosage: UNK
  2. VALIUM [Concomitant]
     Active Substance: DIAZEPAM
  3. CARDURA [Concomitant]
     Active Substance: DOXAZOSIN MESYLATE
  4. AMLODIPINE BESYLATE. [Concomitant]
     Active Substance: AMLODIPINE BESYLATE
  5. LEVOTHYROXINE SODIUM. [Concomitant]
     Active Substance: LEVOTHYROXINE SODIUM
  6. TOPROL XL [Concomitant]
     Active Substance: METOPROLOL SUCCINATE
  7. PERCOCET [Concomitant]
     Active Substance: ACETAMINOPHEN\OXYCODONE HYDROCHLORIDE
  8. XGEVA [Concomitant]
     Active Substance: DENOSUMAB
  9. LISINOPRIL. [Concomitant]
     Active Substance: LISINOPRIL
  10. COMETRIQ [Suspect]
     Active Substance: CABOZANTINIB S-MALATE
     Dosage: 60 MG, QD
     Route: 048
  11. TORSEMIDE. [Concomitant]
     Active Substance: TORSEMIDE
  12. COLACE [Concomitant]
     Active Substance: DOCUSATE SODIUM
  13. LOVASTATIN. [Concomitant]
     Active Substance: LOVASTATIN
  14. CALCIUM [Concomitant]
     Active Substance: CALCIUM
  15. TYLENOL [Concomitant]
     Active Substance: ACETAMINOPHEN
  16. MECLIZINE HCL [Concomitant]
     Active Substance: MECLIZINE HYDROCHLORIDE
  17. DRONABINOL. [Concomitant]
     Active Substance: DRONABINOL
  18. GABAPENTIN. [Concomitant]
     Active Substance: GABAPENTIN
  19. XANAX [Concomitant]
     Active Substance: ALPRAZOLAM
  20. FLOMAX [Concomitant]
     Active Substance: TAMSULOSIN HYDROCHLORIDE
  21. FLAXSEED [Concomitant]
     Active Substance: FLAX SEED
  22. MULTIVITAMINS, COMBINATIONS [Concomitant]
     Active Substance: VITAMINS

REACTIONS (6)
  - Rash macular [Unknown]
  - Weight decreased [Unknown]
  - Allergic cough [Unknown]
  - Taste disorder [Unknown]
  - Diarrhoea [Recovered/Resolved]
  - Off label use [Unknown]
